FAERS Safety Report 21403876 (Version 1)
Quarter: 2022Q4

REPORT INFORMATION
  Report Type: Spontaneous
  Country: DE (occurrence: DE)
  Receive Date: 20221003
  Receipt Date: 20221003
  Transmission Date: 20230113
  Serious: Yes (Hospitalization)
  Sender: FDA-Public Use
  Company Number: DE-AMERICAN REGENT INC-2022002833

PATIENT
  Sex: Female

DRUGS (1)
  1. FERINJECT [Suspect]
     Active Substance: FERRIC CARBOXYMALTOSE
     Indication: Product used for unknown indication
     Dosage: 500 MILLIGRAM (DILUTED 10 ML IN 100 ML NACL (MEDIUM))
     Dates: start: 20201006

REACTIONS (2)
  - Circulatory collapse [Unknown]
  - Nausea [Unknown]

NARRATIVE: CASE EVENT DATE: 20201006
